FAERS Safety Report 6240294-3 (Version None)
Quarter: 2009Q2

REPORT INFORMATION
  Report Type: 
  Country: None (occurrence: None)
  Receive Date: 20090623
  Receipt Date: 20080624
  Transmission Date: 20091009
  Serious: No
  Sender: FDA-Public Use
  Company Number: US-ASTRAZENECA-2008UW12613

PATIENT
  Age: 79 Year
  Sex: Male

DRUGS (5)
  1. PULMICORT RESPULES [Suspect]
     Indication: CHRONIC OBSTRUCTIVE PULMONARY DISEASE
     Route: 055
     Dates: start: 20080301, end: 20080401
  2. PULMICORT RESPULES [Suspect]
     Indication: BRONCHITIS CHRONIC
     Route: 055
     Dates: start: 20080301, end: 20080401
  3. SPIRIVA [Concomitant]
  4. FLOMAX [Concomitant]
  5. VITAMINS [Concomitant]

REACTIONS (2)
  - DYSPHONIA [None]
  - STOMACH SCAN ABNORMAL [None]
